FAERS Safety Report 18024857 (Version 4)
Quarter: 2020Q4

REPORT INFORMATION
  Report Type: Report from Study
  Country: PA (occurrence: PA)
  Receive Date: 20200715
  Receipt Date: 20201106
  Transmission Date: 20210113
  Serious: Yes (Other)
  Sender: FDA-Public Use
  Company Number: NVSC2020PA196053

PATIENT
  Age: 76 Year
  Sex: Female

DRUGS (12)
  1. ACETAMINOPHEN AND CODEINE [Suspect]
     Active Substance: ACETAMINOPHEN\CODEINE PHOSPHATE
     Dosage: UNK, Q6H
     Route: 065
  2. KISQALI [Suspect]
     Active Substance: RIBOCICLIB
     Dosage: 200 MG
     Route: 065
  3. ACETAMINOPHEN AND CODEINE [Suspect]
     Active Substance: ACETAMINOPHEN\CODEINE PHOSPHATE
     Indication: DYSPNOEA
     Dosage: 2 DF, Q4H
     Route: 065
  4. METFORMINE [Suspect]
     Active Substance: METFORMIN HYDROCHLORIDE
     Indication: PRODUCT USED FOR UNKNOWN INDICATION
     Dosage: 1 DF, QD
     Route: 065
  5. KISQALI [Suspect]
     Active Substance: RIBOCICLIB
     Dosage: 200 MG, BID
     Route: 065
     Dates: start: 202005
  6. ANASTRAZOLE SANDOZ 1 MG [Suspect]
     Active Substance: ANASTROZOLE
     Indication: PRODUCT USED FOR UNKNOWN INDICATION
     Dosage: 1 MG, QD
     Route: 065
  7. PREGABALIN. [Suspect]
     Active Substance: PREGABALIN
     Indication: PRODUCT USED FOR UNKNOWN INDICATION
     Dosage: UNK
     Route: 065
  8. DULCOLAX NOS [Suspect]
     Active Substance: BISACODYL OR DOCUSATE SODIUM
     Indication: DIARRHOEA
  9. KISQALI [Suspect]
     Active Substance: RIBOCICLIB
     Indication: BREAST CANCER
     Dosage: 200 MG, TID
     Route: 065
     Dates: start: 202005
  10. KISQALI [Suspect]
     Active Substance: RIBOCICLIB
     Dosage: 400 MG, QD
     Route: 048
     Dates: start: 202005
  11. AMLODIPINE [Suspect]
     Active Substance: AMLODIPINE BESYLATE
     Indication: PRODUCT USED FOR UNKNOWN INDICATION
     Dosage: 1 DF, QD
     Route: 065
  12. DULCOLAX NOS [Suspect]
     Active Substance: BISACODYL OR DOCUSATE SODIUM
     Indication: CONSTIPATION
     Dosage: UNK
     Route: 065

REACTIONS (25)
  - Diarrhoea [Recovering/Resolving]
  - Cerebrovascular accident [Unknown]
  - Metastases to lung [Unknown]
  - Constipation [Unknown]
  - Limb discomfort [Unknown]
  - Discomfort [Unknown]
  - Flatulence [Unknown]
  - Nausea [Unknown]
  - Cataract diabetic [Unknown]
  - Chest discomfort [Unknown]
  - Pain [Unknown]
  - Asthenia [Unknown]
  - Pain in extremity [Unknown]
  - Appetite disorder [Unknown]
  - Insomnia [Recovering/Resolving]
  - Gait disturbance [Unknown]
  - Gastritis [Unknown]
  - Diabetes mellitus [Unknown]
  - Pruritus [Not Recovered/Not Resolved]
  - Dyspnoea [Unknown]
  - Dizziness [Recovering/Resolving]
  - Tearfulness [Unknown]
  - Feeling abnormal [Unknown]
  - Nausea [Recovering/Resolving]
  - Vomiting [Recovered/Resolved]

NARRATIVE: CASE EVENT DATE: 202010
